FAERS Safety Report 9030462 (Version 2)
Quarter: 2013Q1

REPORT INFORMATION
  Report Type: Spontaneous
  Country: US (occurrence: US)
  Receive Date: 20130122
  Receipt Date: 20130131
  Transmission Date: 20140127
  Serious: Yes (Other)
  Sender: FDA-Public Use
  Company Number: US-PFIZER INC-2013024477

PATIENT
  Age: 47 Year
  Sex: Male
  Weight: 77.1 kg

DRUGS (2)
  1. NICOTROL INHALER [Suspect]
     Indication: SMOKING CESSATION THERAPY
     Dosage: 4 MG, UNK
     Dates: start: 20130118, end: 20130118
  2. ATIVAN [Concomitant]
     Indication: ANXIETY
     Dosage: UNK

REACTIONS (8)
  - Chest pain [Not Recovered/Not Resolved]
  - Heart rate irregular [Unknown]
  - Chest discomfort [Not Recovered/Not Resolved]
  - Primary ciliary dyskinesia [Unknown]
  - Chronic obstructive pulmonary disease [Unknown]
  - Headache [Unknown]
  - Pain [Unknown]
  - Abdominal pain upper [Unknown]
